FAERS Safety Report 6434434-0 (Version None)
Quarter: 2009Q4

REPORT INFORMATION
  Report Type: 
  Country: None (occurrence: None)
  Receive Date: 20091110
  Receipt Date: 20091009
  Transmission Date: 20100525
  Serious: No
  Sender: FDA-Public Use
  Company Number: US-BAYER-200915517BCC

PATIENT
  Age: 67 Year
  Sex: Female
  Weight: 64 kg

DRUGS (9)
  1. ALEVE (CAPLET) [Suspect]
     Indication: ARTHRITIS
     Dosage: TOTAL DAILY DOSE: 880 MG  UNIT DOSE: 220 MG
     Route: 048
     Dates: start: 20080701, end: 20090701
  2. ALEVE [Suspect]
     Indication: ARTHRITIS
     Dosage: TOTAL DAILY DOSE: 880 MG  UNIT DOSE: 220 MG
     Route: 048
     Dates: start: 20090701, end: 20091007
  3. PREMARIN [Concomitant]
     Route: 065
  4. PROMETRIUM [Concomitant]
     Dosage: FROM THE 1ST TO THE 13TH
     Route: 065
  5. CALCIUM [Concomitant]
     Route: 065
  6. FISH OIL [Concomitant]
     Route: 065
  7. VITAMIN B COMPLEX CAP [Concomitant]
     Route: 065
  8. GLUCOSAMINE + CHONDROITIN [Concomitant]
     Route: 065
  9. HORMONE REPLACEMENT THERAPY [Concomitant]
     Indication: HORMONE REPLACEMENT THERAPY
     Route: 065

REACTIONS (2)
  - ALOPECIA [None]
  - MADAROSIS [None]
